FAERS Safety Report 19575362 (Version 1)
Quarter: 2021Q3

REPORT INFORMATION
  Report Type: Spontaneous
  Country: US (occurrence: US)
  Receive Date: 20210719
  Receipt Date: 20210719
  Transmission Date: 20211014
  Serious: No
  Sender: FDA-Public Use
  Company Number: US-EMD SERONO-9250122

PATIENT
  Sex: Female

DRUGS (3)
  1. GONAL?F [Suspect]
     Active Substance: FOLLITROPIN
     Indication: INFERTILITY
     Route: 058
     Dates: start: 20200820, end: 202009
  2. OVIDREL [Suspect]
     Active Substance: CHORIOGONADOTROPIN ALFA
     Indication: INFERTILITY
     Route: 058
     Dates: start: 20210622, end: 20210622
  3. GONAL?F [Suspect]
     Active Substance: FOLLITROPIN
     Route: 058
     Dates: start: 20201105

REACTIONS (3)
  - Endometriosis [Recovered/Resolved]
  - Drug hypersensitivity [Recovered/Resolved]
  - Eye disorder [Recovered/Resolved]
